FAERS Safety Report 5888700-8 (Version None)
Quarter: 2008Q3

REPORT INFORMATION
  Report Type: 
  Country: None (occurrence: None)
  Receive Date: 20080917
  Receipt Date: 20080903
  Transmission Date: 20090109
  Serious: Yes (Other)
  Sender: FDA-Public Use
  Company Number: 2008SP018774

PATIENT
  Age: 34 Year
  Sex: Female

DRUGS (2)
  1. BETAMETHASONE SODIUM PHOSPHATE [Suspect]
     Indication: DEAFNESS NEUROSENSORY
     Dosage: 4 MG; IV
     Route: 042
     Dates: start: 20060801, end: 20060801
  2. BETAMETHASONE [Suspect]
     Indication: DEAFNESS NEUROSENSORY
     Dosage: 1.5 MG; PO
     Route: 048
     Dates: start: 20060801, end: 20060801

REACTIONS (5)
  - ACUTE MYOCARDIAL INFARCTION [None]
  - AORTIC OCCLUSION [None]
  - AORTIC THROMBOSIS [None]
  - CORONARY ARTERY THROMBOSIS [None]
  - DIARRHOEA [None]
